FAERS Safety Report 24109949 (Version 1)
Quarter: 2024Q3

REPORT INFORMATION
  Report Type: Spontaneous
  Country: US (occurrence: None)
  Receive Date: 20240717
  Receipt Date: 20240717
  Transmission Date: 20241016
  Serious: Yes (Life-Threatening, Hospitalization, Disabling, Other)
  Sender: Public
  Company Number: None

PATIENT
  Age: 43 Year
  Sex: Female

DRUGS (2)
  1. HERBALS\MUSHROOMS UNSPECIFIED [Suspect]
     Active Substance: HERBALS\MUSHROOMS UNSPECIFIED
     Indication: Affective disorder
     Dosage: OTHER QUANTITY : 2 GUMMY?OTHER FREQUENCY : ONCE?
     Route: 048
     Dates: end: 20240717
  2. SYNTHROID [Concomitant]
     Active Substance: LEVOTHYROXINE SODIUM

REACTIONS (6)
  - Loss of consciousness [None]
  - Seizure [None]
  - Confusional state [None]
  - Recalled product administered [None]
  - Cognitive disorder [None]
  - Respiratory arrest [None]

NARRATIVE: CASE EVENT DATE: 20240714
